FAERS Safety Report 14702290 (Version 1)
Quarter: 2018Q2

REPORT INFORMATION
  Report Type: Spontaneous
  Country: GB (occurrence: GB)
  Receive Date: 20180401
  Receipt Date: 20180401
  Transmission Date: 20180711
  Serious: Yes (Other)
  Sender: FDA-Public Use
  Company Number: GB-SHIRE-GB201805339

PATIENT

DRUGS (3)
  1. SUBCUVIA [Concomitant]
     Active Substance: HUMAN IMMUNOGLOBULIN G
     Indication: PRODUCT USED FOR UNKNOWN INDICATION
  2. CUVITRU [Suspect]
     Active Substance: HUMAN IMMUNOGLOBULIN G
     Indication: PRODUCT USED FOR UNKNOWN INDICATION
     Dosage: UNK
     Route: 065
     Dates: start: 20180102, end: 20180211
  3. CUVITRU [Suspect]
     Active Substance: HUMAN IMMUNOGLOBULIN G
     Dosage: UNK
     Route: 065
     Dates: start: 20180102, end: 20180211

REACTIONS (11)
  - Dizziness [Unknown]
  - Pain in extremity [Unknown]
  - Chills [Unknown]
  - Arthralgia [Unknown]
  - Feeling abnormal [Unknown]
  - Neck pain [Unknown]
  - Fatigue [Unknown]
  - Viral infection [Unknown]
  - Infusion site haemorrhage [Unknown]
  - Abdominal pain upper [Unknown]
  - Headache [Unknown]
